FAERS Safety Report 5037589-8 (Version None)
Quarter: 2006Q2

REPORT INFORMATION
  Report Type: 
  Country: None (occurrence: None)
  Receive Date: 20060607
  Receipt Date: 20060307
  Transmission Date: 20061013
  Serious: No
  Sender: FDA-Public Use
  Company Number: 34199

PATIENT
  Age: 22 Year
  Sex: Female

DRUGS (3)
  1. NEVANAC [Suspect]
     Indication: PROPHYLAXIS
     Dosage: 3 GTT TID OPHT
     Route: 047
     Dates: start: 20060116
  2. VIGAMOX [Concomitant]
  3. FML [Concomitant]

REACTIONS (4)
  - CONDITION AGGRAVATED [None]
  - CORNEAL OPACITY [None]
  - IMPAIRED HEALING [None]
  - VISUAL ACUITY REDUCED [None]
